FAERS Safety Report 11399345 (Version 1)
Quarter: 2015Q3

REPORT INFORMATION
  Report Type: Spontaneous
  Country: JP (occurrence: JP)
  Receive Date: 20150820
  Receipt Date: 20150820
  Transmission Date: 20151125
  Serious: Yes (Death, Hospitalization)
  Sender: FDA-Public Use
  Company Number: JP-BAYER-2014-081260

PATIENT
  Age: 15 Year
  Sex: Male
  Weight: 47 kg

DRUGS (3)
  1. NEXAVAR [Suspect]
     Active Substance: SORAFENIB
     Indication: ACUTE MYELOID LEUKAEMIA
     Dosage: DAILY DOSE 600 MG
     Route: 048
     Dates: start: 20150203, end: 20150716
  2. NEXAVAR [Suspect]
     Active Substance: SORAFENIB
     Indication: ACUTE MYELOID LEUKAEMIA
     Dosage: 200 MG, BID
     Route: 048
     Dates: start: 20140520, end: 20140623
  3. NEXAVAR [Suspect]
     Active Substance: SORAFENIB
     Indication: ACUTE MYELOID LEUKAEMIA
     Dosage: 200 MG, QOD
     Route: 048
     Dates: start: 20140625

REACTIONS (8)
  - Product use issue [None]
  - Platelet count decreased [Not Recovered/Not Resolved]
  - Oral disorder [Not Recovered/Not Resolved]
  - Diarrhoea [Not Recovered/Not Resolved]
  - Neutrophil count decreased [Not Recovered/Not Resolved]
  - Anaemia [Not Recovered/Not Resolved]
  - Acute myeloid leukaemia [Fatal]
  - Product use issue [None]

NARRATIVE: CASE EVENT DATE: 20140520
